FAERS Safety Report 11808190 (Version 3)
Quarter: 2015Q4

REPORT INFORMATION
  Report Type: Report from Study
  Country: CH (occurrence: CH)
  Receive Date: 20151207
  Receipt Date: 20151216
  Transmission Date: 20160305
  Serious: Yes (Hospitalization)
  Sender: FDA-Public Use
  Company Number: CH-ROCHE-1667568

PATIENT
  Age: 67 Year
  Sex: Female

DRUGS (6)
  1. PERTUZUMAB [Suspect]
     Active Substance: PERTUZUMAB
     Dosage: INFUSION OVER 30 TO 60 MIN, DATE OF LAST DOSE PRIOR TO SAE: 28/JUL/2015
     Route: 042
  2. TRASTUZUMAB [Suspect]
     Active Substance: TRASTUZUMAB
     Dosage: MAINTENENCE DOSE, INFUSION OVER 30 MINTO 90 MIN, DATE OF LAST DOSE PRIOR TO SAE: 28/JUL/2015, DOSE 5
     Route: 042
  3. TRASTUZUMAB [Suspect]
     Active Substance: TRASTUZUMAB
     Indication: HER-2 POSITIVE BREAST CANCER
     Dosage: LOADING DOSE , INFUSION OVER 90 MIN
     Route: 042
     Dates: start: 20131217
  4. PERTUZUMAB [Suspect]
     Active Substance: PERTUZUMAB
     Indication: HER-2 POSITIVE BREAST CANCER
     Dosage: LOADING DOSE, INFUSION OVER 60 MIN
     Route: 042
     Dates: start: 20131217
  5. TRASTUZUMAB EMTANSINE [Suspect]
     Active Substance: ADO-TRASTUZUMAB EMTANSINE
     Indication: HER-2 POSITIVE BREAST CANCER
     Dosage: FIRST DOSE: OVER 90 MIN, SUBSEQUENT DOSES: OVER 30 MIN, DATE OF LAST DOSE PRIOR TO SAE: 11/NOV/2015,
     Route: 042
     Dates: start: 20150819
  6. PACLITAXEL. [Suspect]
     Active Substance: PACLITAXEL
     Indication: HER-2 POSITIVE BREAST CANCER
     Dosage: DAY 1, 8 AND 15, EVERY 4 WEEKS FOR LESS THAN OR EQUAL TO 4 MONTHS, DATE OF LAST DOSE PRIOR TO SAE: 2
     Route: 042
     Dates: start: 20131217

REACTIONS (1)
  - Gastritis [Recovered/Resolved]

NARRATIVE: CASE EVENT DATE: 20151123
